FAERS Safety Report 6122621-0 (Version None)
Quarter: 2009Q1

REPORT INFORMATION
  Report Type: 
  Country: None (occurrence: None)
  Receive Date: 20090316
  Receipt Date: 20090227
  Transmission Date: 20090719
  Serious: Yes (Death)
  Sender: FDA-Public Use
  Company Number: 2009BM000050

PATIENT
  Age: 10 Year
  Sex: Female

DRUGS (1)
  1. NAGLAZYME [Suspect]
     Indication: MUCOPOLYSACCHARIDOSIS VI
     Dosage: IVDRP
     Route: 041
     Dates: start: 20081103

REACTIONS (2)
  - ASTHMATIC CRISIS [None]
  - RESPIRATORY FAILURE [None]
